FAERS Safety Report 22776178 (Version 2)
Quarter: 2024Q2

REPORT INFORMATION
  Report Type: Spontaneous
  Country: ES (occurrence: ES)
  Receive Date: 20230802
  Receipt Date: 20240513
  Transmission Date: 20240716
  Serious: Yes (Death, Other)
  Sender: FDA-Public Use
  Company Number: ES-EMA-DD-20230629-6644853-084242

PATIENT
  Age: 25 Year
  Sex: Male

DRUGS (18)
  1. MYCOPHENOLATE MOFETIL [Suspect]
     Active Substance: MYCOPHENOLATE MOFETIL
     Indication: Prophylaxis against transplant rejection
     Dosage: UNK
  2. GANCICLOVIR [Suspect]
     Active Substance: GANCICLOVIR
     Indication: Antiviral prophylaxis
  3. VORICONAZOLE [Suspect]
     Active Substance: VORICONAZOLE
     Indication: Product used for unknown indication
     Dosage: 400 MG EVERY 12 HOURS ON FIRST DAY, FOLLOWED BY 300 MG/12
  4. MEROPENEM [Suspect]
     Active Substance: MEROPENEM
     Indication: Pneumonia
     Dosage: 500MG/24 HOURS
  5. METHYLPREDNISOLONE [Suspect]
     Active Substance: METHYLPREDNISOLONE
     Indication: Prophylaxis against transplant rejection
     Dosage: 125 MG/ EVERY 8 HOURS WITH TAPERING FROM 60 MG/DAY TO 10 MG/DAY
  6. AMIKACIN [Suspect]
     Active Substance: AMIKACIN
     Indication: Pneumonia
  7. BASILIXIMAB [Suspect]
     Active Substance: BASILIXIMAB
     Indication: Prophylaxis against transplant rejection
     Dosage: 20 MG BEFORE THE SURGERY AND AT DAY +4
  8. VANCOMYCIN [Suspect]
     Active Substance: VANCOMYCIN
     Indication: Pneumonia
  9. PREDNISONE [Suspect]
     Active Substance: PREDNISONE
     Indication: Prophylaxis against transplant rejection
  10. CEFTAZIDIME [Suspect]
     Active Substance: CEFTAZIDIME
     Indication: Pneumonia
     Dosage: 1 G EVERY 8 HOURS
  11. TERBINAFINE [Suspect]
     Active Substance: TERBINAFINE
     Indication: Product used for unknown indication
  12. AMPHOTERICIN B [Suspect]
     Active Substance: AMPHOTERICIN B
     Indication: Fungal infection
     Dosage: LIPOSOMAL AMPHOTERICIN B WAS STARTED (270 MG EVERY 24 HOURS)
  13. ANIDULAFUNGIN [Concomitant]
     Active Substance: ANIDULAFUNGIN
     Indication: Antifungal prophylaxis
     Dosage: ON THE FIRST DAY
  14. ACENOCOUMAROL [Concomitant]
     Active Substance: ACENOCOUMAROL
     Indication: Syncope
  15. AMIODARONE [Concomitant]
     Active Substance: AMIODARONE
     Indication: Syncope
  16. COTRIMOXAZOLE [Concomitant]
     Active Substance: SULFAMETHOXAZOLE\TRIMETHOPRIM
     Indication: Antibiotic prophylaxis
  17. CEFAZOLIN [Concomitant]
     Active Substance: CEFAZOLIN
     Indication: Antibiotic prophylaxis
  18. VORICONAZOLE [Suspect]
     Active Substance: VORICONAZOLE
     Indication: Product used for unknown indication
     Dosage: 400 MG EVERY 12 HOURS ON FIRST DAY, FOLLOWED BY 300 MG/12

REACTIONS (12)
  - Pseudomonal bacteraemia [Unknown]
  - Influenza [Unknown]
  - Altered state of consciousness [Unknown]
  - Hemiparesis [Unknown]
  - Candida infection [Unknown]
  - Pneumonia bacterial [Unknown]
  - Fungaemia [Unknown]
  - Scedosporium infection [Fatal]
  - Pancytopenia [Unknown]
  - Epilepsy [Unknown]
  - Septic shock [Unknown]
  - Drug ineffective [Fatal]
